FAERS Safety Report 4968816-0 (Version None)
Quarter: 2006Q2

REPORT INFORMATION
  Report Type: 
  Country: None (occurrence: None)
  Receive Date: 20060411
  Receipt Date: 20060331
  Transmission Date: 20061013
  Serious: Yes (Other)
  Sender: FDA-Public Use
  Company Number: FR-GLAXOSMITHKLINE-B0419122A

PATIENT
  Age: 55 Year
  Sex: Male

DRUGS (6)
  1. AVANDIA [Suspect]
     Indication: DIABETES MELLITUS NON-INSULIN-DEPENDENT
     Route: 048
  2. NOVONORM [Suspect]
     Route: 065
  3. AUGMENTIN '125' [Concomitant]
     Indication: BRONCHITIS
     Route: 065
  4. PNEUMOREL [Concomitant]
     Indication: BRONCHITIS
     Route: 065
  5. DETURGYLONE [Concomitant]
     Indication: BRONCHITIS
     Route: 065
  6. CARBOCYSTEINE [Concomitant]
     Indication: BRONCHITIS
     Route: 065

REACTIONS (3)
  - DYSPNOEA [None]
  - MUSCULOSKELETAL CHEST PAIN [None]
  - PLEURAL EFFUSION [None]
